FAERS Safety Report 20951234 (Version 1)
Quarter: 2022Q2

REPORT INFORMATION
  Report Type: Spontaneous
  Country: US (occurrence: None)
  Receive Date: 20220613
  Receipt Date: 20220613
  Transmission Date: 20220721
  Serious: No
  Sender: FDA-Public Use
  Company Number: None

PATIENT
  Sex: Female

DRUGS (1)
  1. HUMIRA [Suspect]
     Active Substance: ADALIMUMAB
     Indication: Crohn^s disease
     Dosage: FREQUENCY : WEEKLY;?
     Route: 058

REACTIONS (6)
  - Insurance issue [None]
  - Diarrhoea [None]
  - Gastrointestinal disorder [None]
  - Pain [None]
  - Drug ineffective [None]
  - Decreased appetite [None]
